FAERS Safety Report 10467050 (Version 1)
Quarter: 2014Q3

REPORT INFORMATION
  Report Type: Spontaneous
  Country: US (occurrence: None)
  Receive Date: 20140919
  Receipt Date: 20140919
  Transmission Date: 20150326
  Serious: Yes (Other)
  Sender: FDA-Public Use
  Company Number: None

PATIENT
  Age: 76 Year
  Sex: Female
  Weight: 77.11 kg

DRUGS (4)
  1. KCL [Concomitant]
     Active Substance: POTASSIUM CHLORIDE
  2. PYRIDOSTIGMINE [Suspect]
     Active Substance: PYRIDOSTIGMINE
     Indication: MYASTHENIA GRAVIS
     Dosage: UPTO 6 TABS. PER DAY.
     Route: 048
     Dates: start: 20140801, end: 20140918
  3. INDAPAMIDE. [Concomitant]
     Active Substance: INDAPAMIDE
  4. QUINAPRIL [Concomitant]
     Active Substance: QUINAPRIL\QUINAPRIL HYDROCHLORIDE

REACTIONS (3)
  - Treatment failure [None]
  - Myasthenia gravis [None]
  - Product quality issue [None]

NARRATIVE: CASE EVENT DATE: 20140801
